FAERS Safety Report 7592054-9 (Version None)
Quarter: 2011Q3

REPORT INFORMATION
  Report Type: 
  Country: None (occurrence: None)
  Receive Date: 20110705
  Receipt Date: 20110705
  Transmission Date: 20111222
  Serious: Yes (Other)
  Sender: FDA-Public Use
  Company Number: None

PATIENT
  Age: 30 Year
  Sex: Female
  Weight: 68.4932 kg

DRUGS (1)
  1. DEPAKOTE [Suspect]
     Indication: EPILEPSY
     Dosage: 1000 MG TABLET TWICE DAILY PO YEARS
     Route: 048
     Dates: start: 19850901, end: 19861201

REACTIONS (4)
  - DISTURBANCE IN ATTENTION [None]
  - SOMNOLENCE [None]
  - UNEVALUABLE EVENT [None]
  - INTELLIGENCE TEST ABNORMAL [None]
